FAERS Safety Report 7767310 (Version 2)
Quarter: 2020Q3

REPORT INFORMATION
  Report Type: Report from Study
  Country: US (occurrence: US)
  Receive Date: 20110120
  Receipt Date: 20110211
  Transmission Date: 20201104
  Serious: Yes (Death)
  Sender: FDA-Public Use
  Company Number: US-ROCHE-754096

PATIENT

DRUGS (1)
  1. IBANDRONIC ACID. [Suspect]
     Active Substance: IBANDRONIC ACID
     Indication: OSTEOPOROSIS
     Dosage: LAST DOSE TAKEN: JULY/AUGUST 2008.
     Route: 065
     Dates: start: 2006

REACTIONS (2)
  - Dementia Alzheimer^s type [Fatal]
  - Psychotic disorder [Fatal]
